FAERS Safety Report 14596644 (Version 5)
Quarter: 2023Q4

REPORT INFORMATION
  Report Type: Spontaneous
  Country: FR (occurrence: FR)
  Receive Date: 20180304
  Receipt Date: 20231122
  Transmission Date: 20240109
  Serious: Yes (Other)
  Sender: FDA-Public Use
  Company Number: FR-AUROBINDO-AUR-APL-2018-011130

PATIENT
  Age: 30 Year
  Sex: Male

DRUGS (3)
  1. MODAFINIL [Suspect]
     Active Substance: MODAFINIL
     Indication: Narcolepsy
     Dosage: 600 MILLIGRAM, DAILY
     Route: 065
  2. METHYLPHENIDATE [Suspect]
     Active Substance: METHYLPHENIDATE
     Indication: Narcolepsy
     Dosage: 120 MILLIGRAM, ONCE A DAY
     Route: 065
  3. PITOLISANT [Concomitant]
     Active Substance: PITOLISANT
     Indication: Narcolepsy
     Dosage: 40 MILLIGRAM, DAILY
     Route: 065

REACTIONS (5)
  - Psychotic symptom [Unknown]
  - Intentional product misuse [Unknown]
  - Schizotypal personality disorder [Unknown]
  - Hallucination, auditory [Unknown]
  - Psychotic disorder [Unknown]
